FAERS Safety Report 25221241 (Version 1)
Quarter: 2025Q2

REPORT INFORMATION
  Report Type: Spontaneous
  Country: US (occurrence: None)
  Receive Date: 20250421
  Receipt Date: 20250421
  Transmission Date: 20250717
  Serious: Yes (Other)
  Sender: FDA-CTU
  Company Number: None

PATIENT
  Age: 87 Year
  Sex: Female

DRUGS (1)
  1. INFED [Suspect]
     Active Substance: IRON DEXTRAN
     Indication: Pancytopenia
     Route: 040

REACTIONS (3)
  - Hypoxia [None]
  - Pallor [None]
  - Unresponsive to stimuli [None]

NARRATIVE: CASE EVENT DATE: 20250417
